FAERS Safety Report 8015312-2 (Version None)
Quarter: 2011Q4

REPORT INFORMATION
  Report Type: 
  Country: None (occurrence: None)
  Receive Date: 20111230
  Receipt Date: 20111222
  Transmission Date: 20120403
  Serious: Yes (Hospitalization)
  Sender: FDA-Public Use
  Company Number: US-CELGENEUS-163-21880-11112296

PATIENT
  Sex: Male
  Weight: 83.536 kg

DRUGS (4)
  1. NOVOLOG [Concomitant]
     Indication: DIABETES MELLITUS
     Route: 065
  2. REVLIMID [Suspect]
     Indication: MULTIPLE MYELOMA
     Dosage: 5 MILLIGRAM
     Route: 048
     Dates: start: 20110210
  3. REVLIMID [Suspect]
     Dosage: 15 MILLIGRAM
     Route: 048
  4. LANTUS [Concomitant]
     Indication: DIABETES MELLITUS
     Route: 065

REACTIONS (4)
  - FATIGUE [None]
  - GAIT DISTURBANCE [None]
  - ASTHENIA [None]
  - ANAEMIA [None]
